FAERS Safety Report 14431293 (Version 1)
Quarter: 2018Q1

REPORT INFORMATION
  Report Type: Spontaneous
  Country: US (occurrence: US)
  Receive Date: 20180124
  Receipt Date: 20180124
  Transmission Date: 20180509
  Serious: No
  Sender: FDA-Public Use
  Company Number: US-PFIZER INC-2018026001

PATIENT
  Sex: Male

DRUGS (1)
  1. CHANTIX [Suspect]
     Active Substance: VARENICLINE TARTRATE
     Indication: SMOKING CESSATION THERAPY
     Dosage: UNK, (CUT THE 1 MG TABLETS IN HALF)

REACTIONS (5)
  - Drug ineffective [Unknown]
  - Asthenia [Unknown]
  - Intentional product misuse [Unknown]
  - Insomnia [Unknown]
  - Nervousness [Unknown]
